FAERS Safety Report 9644890 (Version 1)
Quarter: 2013Q4

REPORT INFORMATION
  Report Type: Spontaneous
  Country: US (occurrence: None)
  Receive Date: 20131023
  Receipt Date: 20131023
  Transmission Date: 20140711
  Serious: Yes (Other)
  Sender: FDA-Public Use
  Company Number: None

PATIENT
  Age: 34 Year
  Sex: Male
  Weight: 77.11 kg

DRUGS (2)
  1. OXYCODONE 30MG QUALITEST [Suspect]
     Indication: PAIN
  2. OXYCODONE 30MG QUALITEST [Suspect]
     Indication: SURGERY

REACTIONS (2)
  - Product compounding quality issue [None]
  - Product quality issue [None]
